FAERS Safety Report 23759211 (Version 1)
Quarter: 2024Q2

REPORT INFORMATION
  Report Type: Spontaneous
  Country: US (occurrence: None)
  Receive Date: 20240418
  Receipt Date: 20240418
  Transmission Date: 20240716
  Serious: No
  Sender: FDA-Public Use
  Company Number: US-ROCHE-3355560

PATIENT
  Age: 80 Year
  Sex: Female
  Weight: 94.886 kg

DRUGS (6)
  1. ESBRIET [Suspect]
     Active Substance: PIRFENIDONE
     Indication: Interstitial lung disease
     Route: 048
     Dates: start: 202304, end: 202304
  2. ESBRIET [Suspect]
     Active Substance: PIRFENIDONE
     Route: 048
     Dates: start: 202304, end: 202304
  3. ESBRIET [Suspect]
     Active Substance: PIRFENIDONE
     Route: 048
     Dates: start: 202304, end: 20230420
  4. ESBRIET [Suspect]
     Active Substance: PIRFENIDONE
     Dosage: 4 DAYS
     Route: 048
     Dates: start: 20230503, end: 202305
  5. ESBRIET [Suspect]
     Active Substance: PIRFENIDONE
     Dosage: 4 DAYS
     Route: 048
     Dates: start: 202305, end: 202305
  6. ESBRIET [Suspect]
     Active Substance: PIRFENIDONE
     Route: 048
     Dates: start: 202305

REACTIONS (5)
  - Dyspnoea [Not Recovered/Not Resolved]
  - Vomiting [Recovered/Resolved]
  - Asthenia [Recovered/Resolved]
  - Off label use [Unknown]
  - Off label use [Unknown]

NARRATIVE: CASE EVENT DATE: 20230420
